FAERS Safety Report 20882599 (Version 1)
Quarter: 2022Q2

REPORT INFORMATION
  Report Type: Report from Study
  Country: US (occurrence: US)
  Receive Date: 20220527
  Receipt Date: 20220527
  Transmission Date: 20220721
  Serious: Yes (Other)
  Sender: FDA-Public Use
  Company Number: US-ETON PHARMACEUTICALS, INC-2022ETO000096

PATIENT

DRUGS (1)
  1. ALKINDI SPRINKLE [Suspect]
     Active Substance: HYDROCORTISONE
     Indication: Adrenogenital syndrome
     Dosage: 0.5 MG, AS DIRECTED
     Route: 048
     Dates: start: 20210911

REACTIONS (2)
  - Gastrointestinal tube insertion [Unknown]
  - Eye operation [Unknown]

NARRATIVE: CASE EVENT DATE: 20220401
